FAERS Safety Report 8384982-1 (Version None)
Quarter: 2012Q2

REPORT INFORMATION
  Report Type: 
  Country: None (occurrence: None)
  Receive Date: 20120524
  Receipt Date: 20120522
  Transmission Date: 20120825
  Serious: Yes (Other)
  Sender: FDA-Public Use
  Company Number: US-AMGEN-USASP2011059528

PATIENT
  Sex: Female
  Weight: 84.807 kg

DRUGS (4)
  1. ENBREL [Suspect]
     Indication: PRODUCT USED FOR UNKNOWN INDICATION
     Dosage: 50 MG, QWK
     Route: 058
     Dates: start: 20070901, end: 20111201
  2. METHOTREXATE [Concomitant]
     Dosage: UNK
     Dates: start: 20050101
  3. CORTICOSTEROIDS [Concomitant]
     Dosage: UNK
  4. PLAQUENIL [Concomitant]
     Dosage: UNK

REACTIONS (1)
  - DIFFUSE LARGE B-CELL LYMPHOMA [None]
